FAERS Safety Report 8634037 (Version 2)
Quarter: 2013Q3

REPORT INFORMATION
  Report Type: Spontaneous
  Country: US (occurrence: US)
  Receive Date: 20120626
  Receipt Date: 20130702
  Transmission Date: 20140515
  Serious: Yes (Hospitalization, Other)
  Sender: FDA-Public Use
  Company Number: US-ASTRAZENECA-2012SE35906

PATIENT
  Age: 48 Year
  Sex: Female
  Weight: 122.5 kg

DRUGS (13)
  1. NEXIUM [Suspect]
     Indication: GASTRIC DISORDER
     Route: 048
     Dates: start: 2002
  2. PEPCID [Concomitant]
  3. GAVISCON [Concomitant]
  4. MYLANTA [Concomitant]
  5. MORPHINE [Concomitant]
     Indication: PAIN
  6. AMBIEN [Concomitant]
     Indication: SLEEP DISORDER
  7. PROVACID [Concomitant]
  8. SLUFATE [Concomitant]
     Indication: GASTRIC DISORDER
  9. LYRICA [Concomitant]
  10. LIPROSIL [Concomitant]
     Indication: BLOOD PRESSURE
  11. RESTASIS [Concomitant]
     Indication: EYE DISORDER
  12. PLAQUENIL [Concomitant]
     Indication: AUTOIMMUNE DISORDER
  13. CELEBREX [Concomitant]

REACTIONS (16)
  - Gastric disorder [Unknown]
  - Tendon discomfort [Unknown]
  - Gallbladder disorder [Unknown]
  - Cervix cancer metastatic [Unknown]
  - Osteoporosis [Unknown]
  - Spinal fracture [Unknown]
  - Multiple fractures [Unknown]
  - Cardiac disorder [Unknown]
  - Arthritis [Unknown]
  - Calcium deficiency [Unknown]
  - Chronic obstructive pulmonary disease [Unknown]
  - Cardiovascular disorder [Unknown]
  - Rheumatoid arthritis [Unknown]
  - Vitamin D deficiency [Unknown]
  - Abdominal discomfort [Unknown]
  - Breast lump removal [Unknown]
